FAERS Safety Report 8780983 (Version 1)
Quarter: 2012Q4

REPORT INFORMATION
  Report Type: 
  Country: US (occurrence: US)
  Receive Date: 20120913
  Receipt Date: 20120913
  Transmission Date: 20130627
  Serious: No
  Sender: FDA-Public Use
  Company Number: US-009507513-1209USA002280

PATIENT

DRUGS (1)
  1. ASMANEX TWISTHALER [Suspect]
     Indication: ASTHMA
     Dosage: UNK UNK, bid
     Route: 055
     Dates: start: 2008, end: 201205

REACTIONS (2)
  - Influenza like illness [Recovering/Resolving]
  - Fatigue [Recovering/Resolving]
